FAERS Safety Report 14248822 (Version 1)
Quarter: 2017Q4

REPORT INFORMATION
  Report Type: Spontaneous
  Country: ES (occurrence: ES)
  Receive Date: 20171204
  Receipt Date: 20171204
  Transmission Date: 20180321
  Serious: Yes (Other)
  Sender: FDA-Public Use
  Company Number: ES-PFIZER INC-2017515100

PATIENT
  Age: 39 Year
  Sex: Female

DRUGS (6)
  1. JANUMET [Concomitant]
     Active Substance: METFORMIN HYDROCHLORIDE\SITAGLIPTIN PHOSPHATE
     Indication: DIABETES MELLITUS
     Dosage: 1 DF, 2X/DAY
  2. DILUTOL /01036501/ [Concomitant]
     Active Substance: TORSEMIDE
     Dosage: 1 DF, DAILY (BREAKFAST)
  3. HYDROCORTISONE. [Concomitant]
     Active Substance: HYDROCORTISONE
     Dosage: 1 DF, 3X/DAY
  4. EUTIROX [Concomitant]
     Active Substance: LEVOTHYROXINE SODIUM
     Indication: THYROID DISORDER
     Dosage: 1 DF, DAILY (BREAKFAST)
  5. BALZAC [Concomitant]
     Dosage: 1 DF, DAILY (BREAKFAST)
  6. SOMAVERT [Suspect]
     Active Substance: PEGVISOMANT
     Indication: ACROMEGALY
     Dosage: UNK
     Route: 058
     Dates: start: 2008

REACTIONS (4)
  - Fall [Unknown]
  - Fibula fracture [Unknown]
  - Ligament rupture [Unknown]
  - Tibia fracture [Unknown]
